FAERS Safety Report 12237157 (Version 2)
Quarter: 2016Q2

REPORT INFORMATION
  Report Type: Other
  Country: DE (occurrence: DE)
  Receive Date: 20160405
  Receipt Date: 20160416
  Transmission Date: 20160815
  Serious: Yes (Hospitalization, Other)
  Sender: FDA-Public Use
  Company Number: DE-DEXPHARM-20160456

PATIENT
  Age: 24 Year
  Sex: Female
  Weight: 86.7 kg

DRUGS (4)
  1. IBUPROFEN. [Suspect]
     Active Substance: IBUPROFEN
     Dosage: SINGLE DOSE OF 600MG
  2. CEFOTAXIME [Concomitant]
     Active Substance: CEFOTAXIME SODIUM
     Indication: URINARY TRACT INFECTION
  3. FLECAINIDE [Interacting]
     Active Substance: FLECAINIDE
     Indication: SUPRAVENTRICULAR TACHYARRHYTHMIA
  4. DICLOFENAC [Interacting]
     Active Substance: DICLOFENAC
     Dosage: SINGLE DOSE OF 100MG

REACTIONS (1)
  - Drug interaction [Recovered/Resolved]
